FAERS Safety Report 11250223 (Version 1)
Quarter: 2015Q3

REPORT INFORMATION
  Report Type: Spontaneous
  Country: US (occurrence: US)
  Receive Date: 20150708
  Receipt Date: 20150708
  Transmission Date: 20151125
  Serious: Yes (Other)
  Sender: FDA-Public Use
  Company Number: US-ELI_LILLY_AND_COMPANY-US200909007064

PATIENT
  Age: 35 Year
  Sex: Female

DRUGS (3)
  1. KLONOPIN [Concomitant]
     Active Substance: CLONAZEPAM
  2. SYMBYAX [Suspect]
     Active Substance: FLUOXETINE HYDROCHLORIDE\OLANZAPINE
     Dosage: 1 D/F, UNK
     Dates: start: 2009
  3. SYMBYAX [Suspect]
     Active Substance: FLUOXETINE HYDROCHLORIDE\OLANZAPINE
     Indication: AFFECTIVE DISORDER
     Dosage: 1 D/F, UNK
     Dates: start: 200908, end: 2009

REACTIONS (2)
  - Suicidal behaviour [Unknown]
  - Weight increased [Unknown]

NARRATIVE: CASE EVENT DATE: 2009
